FAERS Safety Report 5056430-0 (Version None)
Quarter: 2006Q3

REPORT INFORMATION
  Report Type: 
  Country: None (occurrence: None)
  Receive Date: 20060717
  Receipt Date: 20060703
  Transmission Date: 20061208
  Serious: Yes (Congenital Anomaly, Other)
  Sender: FDA-Public Use
  Company Number: 200612117GDS

PATIENT
  Age: 38 Year
  Sex: Female

DRUGS (2)
  1. CANESTAN (CLOTRIMAZOLE) [Suspect]
     Indication: PRURITUS GENITAL
     Dosage: 500 MG, TOTAL DAILY, VAGINAL
     Route: 067
     Dates: start: 20060512
  2. PIFUKANG [Concomitant]

REACTIONS (7)
  - DRUG EXPOSURE DURING PREGNANCY [None]
  - FOETAL DISORDER [None]
  - FOETAL MOVEMENTS DECREASED [None]
  - INTRA-UTERINE DEATH [None]
  - POLYHYDRAMNIOS [None]
  - UMBILICAL CORD AROUND NECK [None]
  - URINARY INCONTINENCE [None]
